FAERS Safety Report 24694635 (Version 1)
Quarter: 2024Q4

REPORT INFORMATION
  Report Type: Other
  Country: DE (occurrence: DE)
  Receive Date: 20241204
  Receipt Date: 20241204
  Transmission Date: 20250115
  Serious: Yes (Hospitalization)
  Sender: STRIDES
  Company Number: DE-Eisai-EC-2024-178700

PATIENT
  Sex: Female

DRUGS (4)
  1. LACOSAMIDE [Interacting]
     Active Substance: LACOSAMIDE
     Indication: Epilepsy
     Dosage: DOSE AND FREQUENCY UNKNOWN.
     Route: 065
  2. LEVETIRACETAM [Interacting]
     Active Substance: LEVETIRACETAM
     Indication: Epilepsy
     Dosage: DOSE AND FREQUENCY UNKNOWN
     Route: 065
  3. PERAMPANEL [Suspect]
     Active Substance: PERAMPANEL
     Indication: Epilepsy
     Dosage: 8 MILLIGRAM, QD (FILM-COATED TABLET)
     Route: 048
  4. VALPROATE [Interacting]
     Active Substance: VALPROIC ACID
     Indication: Epilepsy
     Dosage: DOSE AND FREQUENCY UNKNOWN.
     Route: 065

REACTIONS (4)
  - Depressed level of consciousness [Recovered/Resolved]
  - Anticonvulsant drug level increased [Recovered/Resolved]
  - Toxicity to various agents [Recovered/Resolved]
  - Drug interaction [Recovered/Resolved]
